FAERS Safety Report 9146270 (Version 1)
Quarter: 2013Q1

REPORT INFORMATION
  Report Type: Spontaneous
  Country: FR (occurrence: FR)
  Receive Date: 20130307
  Receipt Date: 20130307
  Transmission Date: 20140127
  Serious: Yes (Hospitalization, Other)
  Sender: FDA-Public Use
  Company Number: FR-PFIZER INC-2013072815

PATIENT
  Age: 22 Year
  Sex: Male

DRUGS (3)
  1. XANAX [Suspect]
     Dosage: 4 DF, SINGLE
     Route: 048
     Dates: start: 20121218, end: 20121218
  2. IMOVANE [Suspect]
     Dosage: 4 DF, SINGLE
     Route: 048
     Dates: start: 20121218, end: 20121218
  3. STILNOX [Suspect]
     Dosage: 1 DF, SINGLE
     Route: 048
     Dates: start: 20121218, end: 20121218

REACTIONS (4)
  - Intentional overdose [Recovered/Resolved]
  - Somnolence [Recovered/Resolved]
  - Mydriasis [Recovered/Resolved]
  - Agitation [Recovered/Resolved]
